FAERS Safety Report 5715167-2 (Version None)
Quarter: 2008Q2

REPORT INFORMATION
  Report Type: 
  Country: None (occurrence: None)
  Receive Date: 20080423
  Receipt Date: 20080412
  Transmission Date: 20081010
  Serious: Yes (Other)
  Sender: FDA-Public Use
  Company Number: US-ELI_LILLY_AND_COMPANY-US200804004198

PATIENT
  Age: 10 Year
  Sex: Female

DRUGS (3)
  1. STRATTERA [Suspect]
     Indication: ATTENTION DEFICIT/HYPERACTIVITY DISORDER
     Dosage: UNK, UNK
     Dates: start: 20050101, end: 20060606
  2. STRATTERA [Suspect]
     Dosage: 40 MG, UNK
     Dates: start: 20070101, end: 20070101
  3. STRATTERA [Suspect]
     Dosage: 25 MG, 2/D
     Dates: start: 20070101

REACTIONS (4)
  - AGGRESSION [None]
  - ANGER [None]
  - PHYSICAL ASSAULT [None]
  - SUICIDAL IDEATION [None]
